FAERS Safety Report 6694962-X (Version None)
Quarter: 2010Q2

REPORT INFORMATION
  Report Type: 
  Country: None (occurrence: None)
  Receive Date: 20100423
  Receipt Date: 20100414
  Transmission Date: 20101027
  Serious: Yes (Death, Hospitalization)
  Sender: FDA-Public Use
  Company Number: AU-GENENTECH-300207

PATIENT
  Sex: Male

DRUGS (15)
  1. RITUXIMAB [Suspect]
     Indication: DIFFUSE LARGE B-CELL LYMPHOMA
     Dosage: 375 MG/M2, UNK
     Route: 042
     Dates: start: 20100112
  2. RITUXIMAB [Suspect]
     Dosage: 375 MG/M2, UNK
     Route: 042
     Dates: start: 20100127
  3. RITUXIMAB [Suspect]
     Dosage: 375 MG/M2, UNK
     Route: 042
     Dates: start: 20100210
  4. RITUXIMAB [Suspect]
     Dosage: 375 MG/M2, UNK
     Route: 042
     Dates: start: 20100303
  5. CYCLOPHOSPHAMIDE [Suspect]
     Indication: DIFFUSE LARGE B-CELL LYMPHOMA
     Dosage: 750 MG/M2, UNK
     Route: 042
     Dates: start: 20100112
  6. CYCLOPHOSPHAMIDE [Suspect]
     Dosage: 750 MG/M2, UNK
     Route: 042
     Dates: start: 20100210
  7. CYCLOPHOSPHAMIDE [Suspect]
     Dosage: 1250 MG, UNK
     Route: 042
     Dates: start: 20100303
  8. DOXORUBICIN HCL [Suspect]
     Indication: DIFFUSE LARGE B-CELL LYMPHOMA
     Dosage: 50 MG/M2, UNK
     Route: 042
     Dates: start: 20100112
  9. DOXORUBICIN HCL [Suspect]
     Dosage: 50 MG/M2, UNK
     Route: 042
     Dates: start: 20100210
  10. DOXORUBICIN HCL [Suspect]
     Dosage: 85 MG, UNK
     Route: 042
     Dates: start: 20100303
  11. VINCRISTINE [Suspect]
     Indication: DIFFUSE LARGE B-CELL LYMPHOMA
     Dosage: 2 MG/M2, UNK
     Route: 042
     Dates: start: 20100112
  12. VINCRISTINE [Suspect]
     Dosage: 1.4 MG/M2, UNK
     Route: 042
     Dates: start: 20100127
  13. VINCRISTINE [Suspect]
     Dosage: 1.4 MG/M2, UNK
     Route: 042
     Dates: start: 20100210
  14. VINCRISTINE [Suspect]
     Dosage: 1.4 MG/M2, UNK
     Route: 042
     Dates: start: 20100303
  15. PREDNISONE [Suspect]
     Indication: DIFFUSE LARGE B-CELL LYMPHOMA
     Dosage: UNK
     Route: 048

REACTIONS (5)
  - ACUTE HEPATIC FAILURE [None]
  - GAMMA-GLUTAMYLTRANSFERASE INCREASED [None]
  - HYPOTENSION [None]
  - INFECTION [None]
  - WEIGHT DECREASED [None]
